FAERS Safety Report 4806968-3 (Version None)
Quarter: 2005Q4

REPORT INFORMATION
  Report Type: 
  Country: None (occurrence: None)
  Receive Date: 20051019
  Receipt Date: 20051003
  Transmission Date: 20060501
  Serious: Yes (Other)
  Sender: FDA-Public Use
  Company Number: GBS050918461

PATIENT
  Age: 32 Year
  Sex: Female
  Weight: 60 kg

DRUGS (2)
  1. CYMBALTA [Suspect]
     Indication: DEPRESSION
     Dosage: 60 MG
     Dates: start: 20050818, end: 20050820
  2. FEMODENE [Concomitant]

REACTIONS (6)
  - AGITATION [None]
  - HALLUCINATION [None]
  - MANIA [None]
  - NAUSEA [None]
  - TREMOR [None]
  - VOMITING [None]
